FAERS Safety Report 4989463-0 (Version None)
Quarter: 2006Q2

REPORT INFORMATION
  Report Type: 
  Country: None (occurrence: None)
  Receive Date: 20060502
  Receipt Date: 20060331
  Transmission Date: 20061013
  Serious: Yes (Disabling)
  Sender: FDA-Public Use
  Company Number: US-MERCK-0604USA00034

PATIENT
  Age: 62 Year
  Sex: Female

DRUGS (1)
  1. FOSAMAX PLUS D [Suspect]
     Indication: OSTEOPENIA
     Route: 048

REACTIONS (5)
  - NERVE COMPRESSION [None]
  - OSTEOARTHRITIS [None]
  - RADICULOPATHY [None]
  - RHEUMATOID ARTHRITIS [None]
  - SCIATICA [None]
